FAERS Safety Report 22820113 (Version 9)
Quarter: 2023Q4

REPORT INFORMATION
  Report Type: Spontaneous
  Country: US (occurrence: US)
  Receive Date: 20230814
  Receipt Date: 20231106
  Transmission Date: 20240110
  Serious: Yes (Other)
  Sender: FDA-Public Use
  Company Number: US-PFIZER INC-202300272033

PATIENT
  Age: 6 Year
  Sex: Male
  Weight: 21 kg

DRUGS (3)
  1. GENOTROPIN [Suspect]
     Active Substance: SOMATROPIN
     Dosage: 0.8 MG, DAILY
     Dates: start: 20230727, end: 202308
  2. LEVOTHYROXINE [Concomitant]
     Active Substance: LEVOTHYROXINE
     Dosage: UNK
  3. DDAVP [Concomitant]
     Active Substance: DESMOPRESSIN ACETATE
     Dosage: UNK

REACTIONS (5)
  - Pyrexia [Unknown]
  - Drug dose omission by device [Unknown]
  - Liquid product physical issue [Unknown]
  - Device mechanical issue [Unknown]
  - Device information output issue [Unknown]
